FAERS Safety Report 4480020-1 (Version None)
Quarter: 2004Q4

REPORT INFORMATION
  Report Type: 
  Country: None (occurrence: None)
  Receive Date: 20041018
  Receipt Date: 20040930
  Transmission Date: 20050328
  Serious: Yes (Death)
  Sender: FDA-Public Use
  Company Number: DSA_25106_2004

PATIENT
  Age: 47 Year

DRUGS (2)
  1. LORAZEPAM [Suspect]
     Dosage: DF PA
  2. DROPERIDOL [Suspect]
     Dosage: DF PA

REACTIONS (4)
  - ADVERSE DRUG REACTION [None]
  - CARDIAC ARREST [None]
  - OVERDOSE [None]
  - RESPIRATORY ARREST [None]
